FAERS Safety Report 8809034 (Version 1)
Quarter: 2012Q4

REPORT INFORMATION
  Report Type: Spontaneous
  Country: US (occurrence: None)
  Receive Date: 20120921
  Receipt Date: 20120921
  Transmission Date: 20130627
  Serious: Yes (Other)
  Sender: FDA-Public Use
  Company Number: None

PATIENT
  Age: 34 Year
  Sex: Female
  Weight: 49.44 kg

DRUGS (1)
  1. ESCITALOPRAM [Suspect]
     Indication: ANXIETY
     Route: 048
     Dates: start: 20120424, end: 20120510

REACTIONS (7)
  - Blood pressure increased [None]
  - Nausea [None]
  - Suicidal ideation [None]
  - Anxiety [None]
  - Headache [None]
  - Feeling abnormal [None]
  - Product substitution issue [None]
